FAERS Safety Report 18377679 (Version 2)
Quarter: 2021Q2

REPORT INFORMATION
  Report Type: Spontaneous
  Country: US (occurrence: US)
  Receive Date: 20201013
  Receipt Date: 20210622
  Transmission Date: 20210717
  Serious: No
  Sender: FDA-Public Use
  Company Number: US-ASTRAZENECA-2020SF27396

PATIENT
  Sex: Male

DRUGS (2)
  1. FARXIGA [Suspect]
     Active Substance: DAPAGLIFLOZIN PROPANEDIOL
     Dosage: UNKNOWN
     Route: 048
  2. METFORMIN [Concomitant]
     Active Substance: METFORMIN HYDROCHLORIDE

REACTIONS (8)
  - Frustration tolerance decreased [Unknown]
  - Abdominal discomfort [Unknown]
  - Pollakiuria [Unknown]
  - Pruritus [Unknown]
  - Fatigue [Unknown]
  - Dehydration [Unknown]
  - Memory impairment [Unknown]
  - Weight decreased [Unknown]
